FAERS Safety Report 6842734-5 (Version None)
Quarter: 2010Q3

REPORT INFORMATION
  Report Type: 
  Country: None (occurrence: None)
  Receive Date: 20100709
  Receipt Date: 20100623
  Transmission Date: 20110219
  Serious: Yes (Life-Threatening, Hospitalization, Other)
  Sender: FDA-Public Use
  Company Number: GB-ACCORD-005364

PATIENT
  Age: 59 Year
  Sex: Male

DRUGS (18)
  1. SIMVASTATIN [Suspect]
     Indication: PRODUCT USED FOR UNKNOWN INDICATION
     Dosage: 20.00-MG-1.00PER-1.0DAYS / ORAL
     Route: 048
  2. CLARITHROMYCIN [Suspect]
     Indication: PRODUCT USED FOR UNKNOWN INDICATION
     Dosage: 250.00-MG-2.00PER-1.0DAYS
  3. FUSIDIN(FUSIDIN) [Suspect]
     Indication: ARTHRITIS BACTERIAL
     Dosage: 500.00-MG-3.00PER-1.0 DAYS
  4. GLICLAZIDE(GLICLAZIDE) [Concomitant]
  5. ALFACALCIDOL(ALFACALCIDOL) [Concomitant]
  6. ALLOPURINOL [Concomitant]
  7. ATENOLOL [Concomitant]
  8. CALCICHEW(CALCICHEW) [Concomitant]
  9. CEFTRIAXONE [Concomitant]
  10. CLOPIDOGREL [Concomitant]
  11. DIPYRIDAMOLE [Concomitant]
  12. ERYTHROPOETIN(ERYTHROPOETIN) [Concomitant]
  13. FLOXACILLIN SODIUM [Concomitant]
  14. FOLIC ACID [Concomitant]
  15. GENTAMICIN [Concomitant]
  16. IRON SUCROSE(IRON SUCROSE) [Concomitant]
  17. LANSOPRAZOLE [Concomitant]
  18. OROVITE(OROVITE) [Concomitant]

REACTIONS (4)
  - ALANINE AMINOTRANSFERASE INCREASED [None]
  - ASPARTATE AMINOTRANSFERASE INCREASED [None]
  - DRUG INTERACTION [None]
  - RHABDOMYOLYSIS [None]
